FAERS Safety Report 5824574-9 (Version None)
Quarter: 2008Q3

REPORT INFORMATION
  Report Type: 
  Country: None (occurrence: None)
  Receive Date: 20080728
  Receipt Date: 20080718
  Transmission Date: 20090109
  Serious: Yes (Disabling)
  Sender: FDA-Public Use
  Company Number: US-MERCK-0807USA01558

PATIENT
  Age: 70 Year
  Sex: Female

DRUGS (3)
  1. COZAAR [Suspect]
     Indication: HYPERTENSION
     Route: 048
     Dates: start: 20080704
  2. LISINOPRIL [Suspect]
     Route: 048
     Dates: start: 20080201, end: 20080703
  3. MOTRIN [Concomitant]
     Indication: PAIN
     Route: 065

REACTIONS (2)
  - DYSSTASIA [None]
  - MUSCULAR WEAKNESS [None]
